FAERS Safety Report 26098057 (Version 1)
Quarter: 2025Q4

REPORT INFORMATION
  Report Type: Spontaneous
  Country: CN (occurrence: CN)
  Receive Date: 20251127
  Receipt Date: 20251127
  Transmission Date: 20260117
  Serious: Yes (Hospitalization)
  Sender: Kenvue
  Company Number: CN-KENVUE-20251108619

PATIENT
  Age: 54 Year
  Weight: 49 kg

DRUGS (6)
  1. ACETAMINOPHEN [Suspect]
     Active Substance: ACETAMINOPHEN
     Indication: Nasopharyngitis
     Dosage: 1 DOSAGE FORM, SINGLE
  2. ACETAMINOPHEN [Suspect]
     Active Substance: ACETAMINOPHEN
     Indication: Pyrexia
  3. ACETAMINOPHEN\BROMELAINS\CAFFEINE\CHLORPHENIRAMINE\CLOPERASTINE\PSEUDO [Suspect]
     Active Substance: ACETAMINOPHEN\BROMELAINS\CAFFEINE\CHLORPHENIRAMINE\CLOPERASTINE\PSEUDOEPHEDRINE
     Indication: Nasopharyngitis
     Dosage: 2 DOSAGE FORM, SINGLE
  4. ACETAMINOPHEN\BROMELAINS\CAFFEINE\CHLORPHENIRAMINE\CLOPERASTINE\PSEUDO [Suspect]
     Active Substance: ACETAMINOPHEN\BROMELAINS\CAFFEINE\CHLORPHENIRAMINE\CLOPERASTINE\PSEUDOEPHEDRINE
     Indication: Pyrexia
  5. IBUPROFEN [Suspect]
     Active Substance: IBUPROFEN
     Indication: Nasopharyngitis
     Dosage: 1 DOSAGE FORM, SINGLE
  6. IBUPROFEN [Suspect]
     Active Substance: IBUPROFEN
     Indication: Pyrexia

REACTIONS (3)
  - Product administration error [Unknown]
  - Erythema [Recovering/Resolving]
  - Pruritus [Recovering/Resolving]
